FAERS Safety Report 10574092 (Version 2)
Quarter: 2014Q4

REPORT INFORMATION
  Report Type: Spontaneous
  Country: LT (occurrence: LT)
  Receive Date: 20141110
  Receipt Date: 20141118
  Transmission Date: 20150529
  Serious: Yes (Other)
  Sender: FDA-Public Use
  Company Number: PHHY2014LT146158

PATIENT
  Sex: Female

DRUGS (1)
  1. DICLAC [Suspect]
     Active Substance: DICLOFENAC POTASSIUM
     Indication: ANALGESIC THERAPY
     Dosage: 1 DF, UNK
     Route: 030
     Dates: start: 20140903, end: 20140904

REACTIONS (4)
  - Skin discolouration [Unknown]
  - Burning sensation [Unknown]
  - Injection site necrosis [Unknown]
  - Blister [Unknown]

NARRATIVE: CASE EVENT DATE: 20140903
